FAERS Safety Report 18302553 (Version 1)
Quarter: 2020Q3

REPORT INFORMATION
  Report Type: Spontaneous
  Country: US (occurrence: US)
  Receive Date: 20200923
  Receipt Date: 20200923
  Transmission Date: 20201103
  Serious: Yes (Death)
  Sender: FDA-Public Use
  Company Number: US-CELLTRION INC.-2020US026777

PATIENT

DRUGS (8)
  1. RITUXIMAB (UNKNOWN) [Suspect]
     Active Substance: RITUXIMAB
     Dosage: 375 MG/M2, FOUR DOSES OF WEEKLY DURING 5?WEEK SHORT COURSE
     Route: 042
  2. RITUXIMAB (UNKNOWN) [Suspect]
     Active Substance: RITUXIMAB
     Indication: GLYCOGEN STORAGE DISEASE TYPE II
     Dosage: 375 MG/M2, FOUR DOSES OF WEEKLY
     Route: 042
  3. ALGLUCOSIDASE ALFA RECOMBINANT [Suspect]
     Active Substance: ALGLUCOSIDASE ALFA
     Indication: GLYCOGEN STORAGE DISEASE TYPE II
     Dosage: 40 MG/KG, EVERY OTHER WEEK (EOW)
  4. IMMUNOGLOBULIN I.V [Concomitant]
     Active Substance: HUMAN IMMUNOGLOBULIN G
     Indication: IMMUNISATION
     Dosage: 500 MG/KG, MONTHLY, FIRST DOSE OF IVIG WAS ADMINISTERED 24?48 H AFTER THE FIRST DOSE OF RITUXIMAB
     Route: 042
  5. RITUXIMAB (UNKNOWN) [Suspect]
     Active Substance: RITUXIMAB
     Dosage: 375 MG/M2, FOUR DOSES OF WEEKLY DURING 5?WEEK SHORT COURSE DURING 5?WEEK SHORT COURSE
     Route: 042
  6. IMMUNOGLOBULIN I.V [Concomitant]
     Active Substance: HUMAN IMMUNOGLOBULIN G
     Indication: B-CELL DEPLETION THERAPY
  7. RITUXIMAB (UNKNOWN) [Suspect]
     Active Substance: RITUXIMAB
     Dosage: 375 MG/M2, FOUR DOSES OF WEEKLY DURING 5?WEEK SHORT COURSE
     Route: 042
  8. METHOTREXATE. [Suspect]
     Active Substance: METHOTREXATE
     Indication: GLYCOGEN STORAGE DISEASE TYPE II
     Dosage: 0.4 MG/KG, THREE DOSES PER CYCLE WITH FIRST THREE ERT INFUSIONS

REACTIONS (5)
  - Off label use [Unknown]
  - Glycogen storage disease type II [Fatal]
  - Drug effective for unapproved indication [Unknown]
  - Disease progression [Fatal]
  - Product use issue [Unknown]
